FAERS Safety Report 16740076 (Version 1)
Quarter: 2019Q3

REPORT INFORMATION
  Report Type: Spontaneous
  Country: DE (occurrence: DE)
  Receive Date: 20190826
  Receipt Date: 20190826
  Transmission Date: 20191005
  Serious: Yes (Hospitalization, Other)
  Sender: FDA-Public Use
  Company Number: DE-PFIZER INC-2019355699

PATIENT
  Age: 38 Year
  Sex: Male

DRUGS (2)
  1. CYTARABINE. [Suspect]
     Active Substance: CYTARABINE
     Indication: CHLOROMA
     Dosage: 1000 MG/M2, UNK, HIGH DOSE CYTARABINE AS A PART OF INDUCTION CHEMOTHERAPY.
     Route: 065
  2. MITOXANTRONE HCL [Suspect]
     Active Substance: MITOXANTRONE HYDROCHLORIDE
     Indication: CHLOROMA
     Dosage: 10 MG/M2, UNK ADMINISTERED AS A PART OF INDUCTION CHEMOTHERAPY.
     Route: 065

REACTIONS (6)
  - Septic shock [Recovered/Resolved]
  - Bacterial infection [Recovered/Resolved]
  - Parametritis [Recovered/Resolved]
  - Acute kidney injury [Recovered/Resolved]
  - Urinary retention [Recovered/Resolved]
  - Neutropenia [Recovered/Resolved]
